FAERS Safety Report 4757514-4 (Version None)
Quarter: 2005Q3

REPORT INFORMATION
  Report Type: 
  Country: None (occurrence: None)
  Receive Date: 20050831
  Receipt Date: 20041112
  Transmission Date: 20060218
  Serious: Yes (Other)
  Sender: FDA-Public Use
  Company Number: US-MERCK-0411USA02415

PATIENT
  Age: 44 Year
  Sex: Female

DRUGS (1)
  1. VIOXX [Suspect]
     Route: 048
     Dates: end: 20040101

REACTIONS (7)
  - CEREBROVASCULAR ACCIDENT [None]
  - FALL [None]
  - HYPERTENSION [None]
  - LOCALISED INFECTION [None]
  - NASOPHARYNGITIS [None]
  - PAIN IN EXTREMITY [None]
  - PURULENCE [None]
